FAERS Safety Report 5179893-9 (Version None)
Quarter: 2006Q4

REPORT INFORMATION
  Report Type: 
  Country: None (occurrence: None)
  Receive Date: 20061211
  Receipt Date: 20061127
  Transmission Date: 20070319
  Serious: Yes (Death)
  Sender: FDA-Public Use
  Company Number: WAES 0611USA07526

PATIENT
  Age: 86 Year
  Sex: Female

DRUGS (3)
  1. STROMECTOL [Suspect]
     Indication: ACARODERMATITIS
     Dosage: 9 MG/1X
     Route: 048
     Dates: start: 20060916, end: 20060916
  2. ALESION [Concomitant]
  3. EURAX [Concomitant]

REACTIONS (1)
  - CARDIO-RESPIRATORY ARREST [None]
